FAERS Safety Report 9333111 (Version 1)
Quarter: 2013Q2

REPORT INFORMATION
  Report Type: Spontaneous
  Country: TR (occurrence: TR)
  Receive Date: 20130606
  Receipt Date: 20130606
  Transmission Date: 20140414
  Serious: Yes (Other)
  Sender: FDA-Public Use
  Company Number: TR-VERTEX PHARMACEUTICALS INC-2013-006795

PATIENT
  Age: 45 Year
  Sex: Female

DRUGS (4)
  1. INCIVO [Suspect]
     Indication: HEPATITIS C
     Dosage: 750 MG, TID
     Route: 048
  2. PEGINTERFERON ALFA [Suspect]
     Indication: HEPATITIS C
     Dosage: DOSAGE FORM: UNSPECIFIED
     Route: 065
  3. RIBAVIRIN [Suspect]
     Indication: HEPATITIS C
     Dosage: DOSAGE FORM: UNSPECIFIED
     Route: 065
  4. ANTIDIABETICS [Concomitant]
     Indication: DIABETES MELLITUS
     Dosage: DOSAGE FORM: UNSPECIFIED
     Route: 048

REACTIONS (2)
  - Optic neuritis [Unknown]
  - Blindness [Unknown]
